FAERS Safety Report 4905176-5 (Version None)
Quarter: 2006Q1

REPORT INFORMATION
  Report Type: 
  Country: None (occurrence: None)
  Receive Date: 20060208
  Receipt Date: 20051121
  Transmission Date: 20060701
  Serious: No
  Sender: FDA-Public Use
  Company Number: US-GLAXOSMITHKLINE-A0583403A

PATIENT
  Age: 3 Month
  Sex: Female

DRUGS (2)
  1. PAXIL [Suspect]
     Dosage: 40MG PER DAY
     Route: 048
  2. NO CONCURRENT MEDICATION [Concomitant]

REACTIONS (5)
  - CRYING [None]
  - DRUG EXPOSURE VIA BREAST MILK [None]
  - GASTRIC DISORDER [None]
  - HYPERREFLEXIA [None]
  - INSOMNIA [None]
